FAERS Safety Report 18925570 (Version 1)
Quarter: 2021Q1

REPORT INFORMATION
  Report Type: Spontaneous
  Country: US (occurrence: US)
  Receive Date: 20210223
  Receipt Date: 20210223
  Transmission Date: 20210420
  Serious: No
  Sender: FDA-Public Use
  Company Number: US-TEVA-2021-US-1883625

PATIENT
  Sex: Male

DRUGS (2)
  1. AUSTEDO [Suspect]
     Active Substance: DEUTETRABENAZINE
     Indication: TARDIVE DYSKINESIA
     Dosage: 6 MILLIGRAM DAILY;
     Route: 065
     Dates: start: 202102
  2. PRIMIDONE. [Suspect]
     Active Substance: PRIMIDONE
     Route: 065

REACTIONS (2)
  - Somnolence [Unknown]
  - Nightmare [Unknown]
